FAERS Safety Report 7440086-3 (Version None)
Quarter: 2011Q2

REPORT INFORMATION
  Report Type: 
  Country: None (occurrence: None)
  Receive Date: 20110427
  Receipt Date: 20101223
  Transmission Date: 20111010
  Serious: Yes (Hospitalization, Other)
  Sender: FDA-Public Use
  Company Number: US-BAYER-201033325NA

PATIENT
  Age: 15 Year
  Sex: Female
  Weight: 58.05 kg

DRUGS (5)
  1. PROTONIX [Concomitant]
     Indication: GASTROOESOPHAGEAL REFLUX DISEASE
     Dosage: UNK
     Dates: start: 20090915
  2. YAZ [Suspect]
     Indication: MENSTRUAL DISORDER
     Dosage: UNK UNK, QD
     Route: 048
     Dates: start: 20090301, end: 20091101
  3. KAPIDEX [Concomitant]
     Dosage: UNK
     Dates: start: 20090928
  4. YAZ [Suspect]
     Indication: OVARIAN CYST
  5. YASMIN [Suspect]
     Indication: MENSTRUAL DISORDER
     Route: 048
     Dates: start: 20090101

REACTIONS (6)
  - ABDOMINAL PAIN [None]
  - CHOLECYSTITIS CHRONIC [None]
  - GALLBLADDER NON-FUNCTIONING [None]
  - BILIARY DYSKINESIA [None]
  - UMBILICAL HERNIA [None]
  - BILIARY COLIC [None]
